FAERS Safety Report 9099447 (Version 1)
Quarter: 2013Q1

REPORT INFORMATION
  Report Type: Spontaneous
  Country: US (occurrence: US)
  Receive Date: 20130213
  Receipt Date: 20130213
  Transmission Date: 20140127
  Serious: Yes (Other)
  Sender: FDA-Public Use
  Company Number: US-ALLERGAN-1214063US

PATIENT
  Age: 67 Year
  Sex: Female

DRUGS (2)
  1. OZURDEX [Suspect]
     Indication: RETINAL VEIN OCCLUSION
     Dosage: 0.7 MG, SINGLE
     Route: 031
     Dates: start: 20120830, end: 20120902
  2. GENTAMICIN [Concomitant]
     Indication: INFECTION PROPHYLAXIS
     Dosage: 1 GTT, TID
     Route: 047
     Dates: start: 20120830, end: 20120902

REACTIONS (1)
  - Endophthalmitis [Recovered/Resolved]
